FAERS Safety Report 4711621-0 (Version None)
Quarter: 2005Q3

REPORT INFORMATION
  Report Type: 
  Country: None (occurrence: None)
  Receive Date: 20050708
  Receipt Date: 20050708
  Transmission Date: 20060218
  Serious: Yes (Other)
  Sender: FDA-Public Use
  Company Number: None

PATIENT
  Age: 30 Year
  Sex: Female
  Weight: 55.7924 kg

DRUGS (1)
  1. AZITHROMYCIN [Suspect]
     Indication: SINUSITIS
     Dosage: 250 MG   DAY   ORAL
     Route: 048
     Dates: start: 20050209, end: 20050213

REACTIONS (4)
  - ABDOMINAL PAIN [None]
  - MALABSORPTION [None]
  - VOMITING [None]
  - WEIGHT DECREASED [None]
